FAERS Safety Report 5856749-7 (Version None)
Quarter: 2008Q3

REPORT INFORMATION
  Report Type: 
  Country: None (occurrence: None)
  Receive Date: 20080822
  Receipt Date: 20080822
  Transmission Date: 20090109
  Serious: Yes (Hospitalization)
  Sender: FDA-Public Use
  Company Number: None

PATIENT
  Sex: Male
  Weight: 95.2554 kg

DRUGS (2)
  1. PACLITAXEL [Suspect]
  2. CETUXIMAB [Suspect]

REACTIONS (8)
  - ASTHENIA [None]
  - BLOOD POTASSIUM INCREASED [None]
  - FATIGUE [None]
  - HYDRONEPHROSIS [None]
  - OBSTRUCTION [None]
  - PERIPHERAL SENSORY NEUROPATHY [None]
  - RENAL FAILURE ACUTE [None]
  - RENAL FAILURE CHRONIC [None]
